FAERS Safety Report 7320218-8 (Version None)
Quarter: 2011Q1

REPORT INFORMATION
  Report Type: 
  Country: None (occurrence: None)
  Receive Date: 20110228
  Receipt Date: 20110217
  Transmission Date: 20110831
  Serious: Yes (Other)
  Sender: FDA-Public Use
  Company Number: PHHO2011US03158

PATIENT
  Sex: Male

DRUGS (2)
  1. AFINITOR [Suspect]
     Indication: THYROID CANCER
     Dosage: UNK
     Dates: start: 20101223
  2. SORAFENIB [Suspect]
     Indication: THYROID CANCER
     Dosage: UNK
     Dates: start: 20101223

REACTIONS (3)
  - KERATOACANTHOMA [None]
  - CYST RUPTURE [None]
  - DERMAL CYST [None]
